FAERS Safety Report 10472833 (Version 4)
Quarter: 2019Q1

REPORT INFORMATION
  Report Type: Report from Study
  Country: US (occurrence: US)
  Receive Date: 20140924
  Receipt Date: 20190314
  Transmission Date: 20190417
  Serious: Yes (Other)
  Sender: FDA-Public Use
  Company Number: US-SA-2014SA005102

PATIENT
  Age: 42 Year
  Sex: Male

DRUGS (3)
  1. CORTICOSTEROID NOS [Concomitant]
     Active Substance: CORTICOSTEROID NOS
     Indication: PROPHYLAXIS
     Dosage: UNK
  2. ALGLUCOSIDASE ALFA [Suspect]
     Active Substance: ALGLUCOSIDASE ALFA
     Indication: GLYCOGEN STORAGE DISEASE TYPE II
     Dosage: 1800 MG,QOW
     Route: 042
     Dates: start: 20080404
  3. ALGLUCOSIDASE ALFA [Suspect]
     Active Substance: ALGLUCOSIDASE ALFA
     Dosage: 1800 ,Q2
     Route: 041
     Dates: start: 20140211

REACTIONS (6)
  - Unevaluable event [Unknown]
  - Diverticulitis [Not Recovered/Not Resolved]
  - Pneumonia [Recovering/Resolving]
  - Muscular weakness [Unknown]
  - Fatigue [Unknown]
  - Urticaria [Recovered/Resolved]

NARRATIVE: CASE EVENT DATE: 20140108
